FAERS Safety Report 7033539-3 (Version None)
Quarter: 2010Q4

REPORT INFORMATION
  Report Type: 
  Country: None (occurrence: None)
  Receive Date: 20101007
  Receipt Date: 20100923
  Transmission Date: 20110411
  Serious: Yes (Other)
  Sender: FDA-Public Use
  Company Number: PHHY2010DE63398

PATIENT
  Age: 12 Year
  Sex: Male

DRUGS (3)
  1. EXJADE [Suspect]
     Dosage: 125MG
     Route: 048
     Dates: start: 20080101
  2. EXJADE [Suspect]
     Dosage: 250MG
     Route: 048
  3. EXJADE [Suspect]
     Dosage: 500MG
     Route: 048
     Dates: start: 20090101

REACTIONS (1)
  - GROWTH RETARDATION [None]
